FAERS Safety Report 23483609 (Version 3)
Quarter: 2024Q1

REPORT INFORMATION
  Report Type: Spontaneous
  Country: US (occurrence: US)
  Receive Date: 20240205
  Receipt Date: 20240221
  Transmission Date: 20240410
  Serious: No
  Sender: FDA-Public Use
  Company Number: US-PFIZER INC-202400030146

PATIENT
  Age: 83 Year
  Sex: Male
  Weight: 93.89 kg

DRUGS (8)
  1. VYNDAMAX [Suspect]
     Active Substance: TAFAMIDIS
     Indication: Cardiac amyloidosis
     Dosage: 61MG CAPSULE PER DAY
     Route: 048
     Dates: start: 20231113, end: 20240128
  2. VYNDAMAX [Suspect]
     Active Substance: TAFAMIDIS
     Dosage: 61 MG, 1X/DAY
     Route: 048
     Dates: start: 20240203
  3. LOSARTAN [Concomitant]
     Active Substance: LOSARTAN
  4. AMLODIPINE [Concomitant]
     Active Substance: AMLODIPINE BESYLATE
  5. LIPITOR [Concomitant]
     Active Substance: ATORVASTATIN CALCIUM
  6. ELIQUIS [Concomitant]
     Active Substance: APIXABAN
  7. CARVEDILOL [Concomitant]
     Active Substance: CARVEDILOL
  8. SYNTHROID [Concomitant]
     Active Substance: LEVOTHYROXINE SODIUM

REACTIONS (3)
  - Arthralgia [Recovered/Resolved]
  - Back pain [Recovered/Resolved]
  - Neck pain [Recovered/Resolved]

NARRATIVE: CASE EVENT DATE: 20240101
